FAERS Safety Report 13935589 (Version 1)
Quarter: 2017Q3

REPORT INFORMATION
  Report Type: Report from Study
  Country: None (occurrence: US)
  Receive Date: 20170905
  Receipt Date: 20170905
  Transmission Date: 20171127
  Serious: Yes (Hospitalization, Other)
  Sender: FDA-Public Use
  Company Number: US-ABBVIE-17K-163-2088426-00

PATIENT
  Sex: Female

DRUGS (1)
  1. HUMIRA [Suspect]
     Active Substance: ADALIMUMAB
     Indication: RHEUMATOID ARTHRITIS
     Route: 058
     Dates: end: 201707

REACTIONS (4)
  - Appendicitis [Recovered/Resolved]
  - Infection [Unknown]
  - Disease complication [Unknown]
  - Appendicitis perforated [Unknown]

NARRATIVE: CASE EVENT DATE: 2017
